FAERS Safety Report 16312343 (Version 3)
Quarter: 2019Q2

REPORT INFORMATION
  Report Type: Spontaneous
  Country: US (occurrence: US)
  Receive Date: 20190515
  Receipt Date: 20190612
  Transmission Date: 20190711
  Serious: No
  Sender: FDA-Public Use
  Company Number: US-009507513-1905USA006301

PATIENT
  Age: 65 Year
  Sex: Female

DRUGS (4)
  1. SPIRIVA [Concomitant]
     Active Substance: TIOTROPIUM BROMIDE MONOHYDRATE
  2. PROVENTIL [Suspect]
     Active Substance: ALBUTEROL
     Indication: CHRONIC OBSTRUCTIVE PULMONARY DISEASE
     Dosage: TWO PUFFS EVERY 4-6 HOURS, AS NEEDED
     Route: 055
     Dates: start: 20100310
  3. PROVENTIL [Suspect]
     Active Substance: ALBUTEROL
     Dosage: TWO PUFFS EVERY 4-6 HOURS, AS NEEDED
     Route: 055
  4. PROVENTIL [Suspect]
     Active Substance: ALBUTEROL
     Dosage: TWO PUFFS EVERY 4-6 HOURS, AS NEEDED
     Route: 055

REACTIONS (7)
  - Dyspnoea [Not Recovered/Not Resolved]
  - Decreased appetite [Not Recovered/Not Resolved]
  - Poor quality device used [Unknown]
  - Product quality issue [Unknown]
  - Fatigue [Not Recovered/Not Resolved]
  - Malaise [Unknown]
  - Product dose omission [Unknown]

NARRATIVE: CASE EVENT DATE: 2019
